FAERS Safety Report 26103374 (Version 1)
Quarter: 2025Q4

REPORT INFORMATION
  Report Type: Report from Study
  Country: US (occurrence: US)
  Receive Date: 20251129
  Receipt Date: 20251129
  Transmission Date: 20260118
  Serious: Yes (Hospitalization, Other)
  Sender: AUROBINDO
  Company Number: US-APOTEX-2014AP004509

PATIENT
  Age: 22 Month
  Sex: Female

DRUGS (1)
  1. LISINOPRIL [Suspect]
     Active Substance: LISINOPRIL
     Indication: Product used for unknown indication
     Dosage: 120 UNK

REACTIONS (4)
  - Somnolence [Unknown]
  - Hypotension [Unknown]
  - Tachycardia [Unknown]
  - Accidental exposure to product by child [Unknown]
